FAERS Safety Report 9702701 (Version 1)
Quarter: 2013Q4

REPORT INFORMATION
  Report Type: Other
  Country: US (occurrence: US)
  Receive Date: 20131121
  Receipt Date: 20131121
  Transmission Date: 20140711
  Serious: Yes (Other)
  Sender: FDA-Public Use
  Company Number: US-FRI-1000051538

PATIENT
  Age: 75 Year
  Sex: Male

DRUGS (1)
  1. CEFTAROLINE FOSAMIL [Suspect]
     Indication: STAPHYLOCOCCAL INFECTION
     Dosage: 600 MG DAILY

REACTIONS (1)
  - Bacteraemia [Unknown]
